FAERS Safety Report 5744344-X (Version None)
Quarter: 2008Q2

REPORT INFORMATION
  Report Type: 
  Country: None (occurrence: None)
  Receive Date: 20080520
  Receipt Date: 20080508
  Transmission Date: 20081010
  Serious: Yes (Hospitalization, Other)
  Sender: FDA-Public Use
  Company Number: CA-ELI_LILLY_AND_COMPANY-CA200803001144

PATIENT
  Sex: Female

DRUGS (27)
  1. FORTEO [Suspect]
     Indication: OSTEOPOROSIS
     Dosage: 20 UG, DAILY (1/D)
     Route: 058
     Dates: start: 20070827
  2. ATORVASTATIN [Concomitant]
     Dosage: 20 MG, EACH EVENING
     Route: 048
  3. NORTRIPTYLINE HCL [Concomitant]
     Dosage: 25 MG, EACH EVENING
     Route: 048
  4. LEVOTHYROXINE SODIUM [Concomitant]
     Dosage: 0.1 MG, DAILY (1/D)
     Route: 048
  5. TIOTROPIUM BROMIDE [Concomitant]
     Dosage: 18 UG, DAILY (1/D)
     Route: 055
  6. CALCIUM CARBONATE [Concomitant]
     Dosage: 1250 MG, DAILY (1/D)
  7. VITAMIN D [Concomitant]
     Dosage: 1000 IU, DAILY (1/D)
     Route: 048
  8. MIRTAZAPINE [Concomitant]
     Dosage: 30 MG, EACH EVENING
     Route: 048
  9. ACETYLSALICYLIC ACID SRT [Concomitant]
     Dosage: UNK, UNK
     Route: 048
     Dates: end: 20080101
  10. ACETYLSALICYLIC ACID SRT [Concomitant]
     Dosage: 81 MG, DAILY (1/D)
     Route: 048
     Dates: start: 20080101
  11. NOVOLIN GE 30/70 [Concomitant]
     Dosage: UNK, UNK
     Route: 058
     Dates: end: 20080101
  12. NOVOLIN GE 30/70 [Concomitant]
     Dosage: 10 U, EACH MORNING
     Route: 058
     Dates: start: 20080101
  13. LOSARTAN POTASSIUM [Concomitant]
     Dosage: UNK, UNK
     Route: 048
     Dates: end: 20080101
  14. LOSARTAN POTASSIUM [Concomitant]
     Dosage: 50 MG, 2/D
     Route: 048
     Dates: start: 20080101
  15. AMLODIPINE BESYLATE [Concomitant]
     Dosage: UNK, UNK
     Route: 048
     Dates: end: 20080101
  16. AMLODIPINE BESYLATE [Concomitant]
     Dosage: 15 MG, EACH EVENING
     Route: 048
     Dates: start: 20080101
  17. FUROSEMIDE [Concomitant]
     Dosage: UNK, UNK
     Route: 048
     Dates: end: 20080101
  18. FUROSEMIDE [Concomitant]
     Dosage: 20 MG, 2/D
     Route: 048
     Dates: start: 20080101
  19. NOVOLIN N [Concomitant]
     Dosage: UNK, UNK
     Route: 058
     Dates: end: 20080101
  20. NOVOLIN N [Concomitant]
     Dosage: 6 U, EACH EVENING
     Route: 058
     Dates: start: 20080101
  21. METOPROLOL TARTRATE [Concomitant]
     Dosage: UNK, UNK
     Route: 048
     Dates: end: 20080101
  22. METOPROLOL TARTRATE [Concomitant]
     Dosage: 100 MG, 2/D
     Route: 048
     Dates: start: 20080101
  23. BUDESONIDE W/FORMOTEROL FUMARATE [Concomitant]
     Dosage: UNK, 2/D
     Route: 055
  24. DIAZEPAM [Concomitant]
     Dosage: UNK, UNK
     Route: 048
     Dates: end: 20080101
  25. DIAZEPAM [Concomitant]
     Dosage: 4 MG, 2/D
     Route: 048
     Dates: start: 20080101
  26. COTAZYM ECS [Concomitant]
     Dosage: UNK, 3/D
     Route: 048
  27. BECLOMETHASONE DIPROPIONATE [Concomitant]
     Dosage: UNK, 2/D
     Route: 055

REACTIONS (25)
  - ATELECTASIS [None]
  - BASE EXCESS [None]
  - BLOOD GLUCOSE INCREASED [None]
  - BLOOD PH DECREASED [None]
  - BLOOD POTASSIUM DECREASED [None]
  - BLOOD PRESSURE DIASTOLIC DECREASED [None]
  - BLOOD PRESSURE SYSTOLIC INCREASED [None]
  - DECUBITUS ULCER [None]
  - EMPYEMA [None]
  - ESCHERICHIA INFECTION [None]
  - HYPERHIDROSIS [None]
  - NASOPHARYNGITIS [None]
  - PELVI-URETERIC OBSTRUCTION [None]
  - PLATELET COUNT INCREASED [None]
  - PLEURAL EFFUSION [None]
  - PNEUMOBILIA [None]
  - PNEUMONIA [None]
  - RENAL CYST RUPTURED [None]
  - RIB FRACTURE [None]
  - SWELLING [None]
  - TACHYCARDIA [None]
  - URINARY TRACT INFECTION [None]
  - URINOMA [None]
  - VENOUS PRESSURE JUGULAR INCREASED [None]
  - WHEEZING [None]
